FAERS Safety Report 7604661-5 (Version None)
Quarter: 2011Q3

REPORT INFORMATION
  Report Type: 
  Country: None (occurrence: None)
  Receive Date: 20110712
  Receipt Date: 20110628
  Transmission Date: 20111222
  Serious: Yes (Other)
  Sender: FDA-Public Use
  Company Number: JP-MYLANLABS-2011S1013834

PATIENT
  Age: 59 Year
  Sex: Male
  Weight: 64 kg

DRUGS (23)
  1. FLOMOXEF [Concomitant]
     Route: 042
  2. MEPIVACAINE HCL [Concomitant]
     Dosage: 1% AND 2% GIVEN DURING FIRST SURGERY.
     Route: 008
  3. APRINDINE [Concomitant]
     Indication: ATRIAL FIBRILLATION
     Route: 065
  4. FENTANYL-100 [Concomitant]
     Indication: POSTOPERATIVE ANALGESIA
     Dosage: 5 ML/HR OF FENTANYL 0.4MG, DROPERIDOL 2.5MG AND 0.2% ROPIVACAINE 100ML MIXED SOLUTION
     Route: 008
  5. ATROPINE [Concomitant]
     Route: 030
  6. THIOPENTAL SODIUM [Concomitant]
     Indication: ANAESTHESIA
     Dosage: 300MG GIVEN FOR ANAESTHESIA FOR EACH SURGERY.
     Route: 065
  7. CALCIUM POLYSTYRENE SULFONATE [Concomitant]
     Indication: GLOMERULONEPHRITIS RAPIDLY PROGRESSIVE
     Route: 065
  8. ROCURONIUM BROMIDE [Suspect]
     Indication: SURGERY
     Dosage: SURGERY 1: 160MG. SURGERY 2: 40MG.
     Route: 065
  9. MIDAZOLAM HCL [Concomitant]
     Route: 030
  10. FENTANYL-100 [Concomitant]
     Indication: ANAESTHESIA
     Dosage: SURGERY 1: ANAESTHESIA INDUCED WITH 0.2MG; TOTAL DOSE 0.3MG.
     Route: 065
  11. PROPOFOL [Concomitant]
     Dosage: SURGERY 1: CUMULATIVE 1268MG; SURGERY 2: CUMULATIVE 209MG.
  12. VOGLIBOSE [Concomitant]
     Indication: DIABETES MELLITUS
     Route: 065
  13. BEPRIDIL [Concomitant]
     Indication: ATRIAL FIBRILLATION
     Route: 065
  14. PREDNISOLONE [Concomitant]
     Indication: GLOMERULONEPHRITIS RAPIDLY PROGRESSIVE
     Route: 065
  15. PROSTIGMIN BROMIDE [Suspect]
     Indication: SURGERY
     Dosage: AFTER SURGERY 1: 2MG. AFTER SURGERY 2: 2MG, THEN A FURTHER 2MG.
     Route: 065
  16. METHYLEPHEDRINE [Concomitant]
     Indication: EMPHYSEMA
     Route: 065
  17. HYDROCORTISONE [Concomitant]
     Route: 042
  18. MEPIVACAINE HCL [Concomitant]
     Dosage: 1% PRN GIVEN DURING SECOND SURGERY.
     Route: 008
  19. ATROPINE [Concomitant]
     Indication: SURGERY
     Dosage: AFTER SURGERY 1: 1MG. AFTER SURGERY 2: 1MG, THEN A FURTHER 1MG.
     Route: 065
  20. DEXTROMETHORPHAN HYDROBROMIDE [Concomitant]
     Indication: EMPHYSEMA
     Route: 065
  21. ROPIVACAINE HYDROCHLORIDE [Concomitant]
     Dosage: 5 ML/HR OF FENTANYL 0.4MG, DROPERIDOL 2.5MG AND 0.2% ROPIVACAINE 100ML MIXED SOLUTION
     Route: 008
  22. LAMIVUDINE [Concomitant]
     Indication: HEPATITIS B
     Route: 065
  23. DROPERIDOL [Concomitant]
     Dosage: 5 ML/HR OF FENTANYL 0.4MG, DROPERIDOL 2.5MG AND 0.2% ROPIVACAINE 100ML MIXED SOLUTION
     Route: 008

REACTIONS (1)
  - RESPIRATORY DEPRESSION [None]
